FAERS Safety Report 9575319 (Version 2)
Quarter: 2013Q4

REPORT INFORMATION
  Report Type: Report from Study
  Country: US (occurrence: US)
  Receive Date: 20131001
  Receipt Date: 20131001
  Transmission Date: 20140711
  Serious: Yes (Hospitalization, Other)
  Sender: FDA-Public Use
  Company Number: US-ABBVIE-08P-163-0462228-00

PATIENT
  Age: 37 Year
  Sex: Female
  Weight: 54.48 kg

DRUGS (12)
  1. HUMIRA 40 MG/0.8 ML PEN [Suspect]
     Indication: CROHN^S DISEASE
     Route: 058
     Dates: start: 2007, end: 200905
  2. HUMIRA 40 MG/0.8 ML PEN [Suspect]
     Route: 058
     Dates: start: 200911, end: 201106
  3. PRENATAL VITAMINS [Concomitant]
     Indication: PREGNANCY
     Route: 048
     Dates: start: 20071126
  4. FLINTSTONES MULTIVITAMINS WITH IRON [Concomitant]
     Indication: PREGNANCY
     Route: 048
     Dates: start: 20071214, end: 20080307
  5. VITAMIN B12 [Concomitant]
     Indication: PRODUCT USED FOR UNKNOWN INDICATION
     Route: 050
  6. LYRICA [Concomitant]
     Indication: FIBROMYALGIA
     Route: 048
     Dates: end: 20071210
  7. XANAX [Concomitant]
     Indication: ANXIETY
     Route: 048
     Dates: end: 20071124
  8. XANAX [Concomitant]
     Route: 048
     Dates: start: 20071125
  9. XANAX [Concomitant]
     Dosage: 3 IN 1 DAY, AS NEEDED
  10. UNSPECIFIED PAIN MEDICATION [Concomitant]
     Indication: PAIN
     Route: 042
     Dates: start: 20080118, end: 20080119
  11. LORTAB [Concomitant]
     Indication: PAIN
     Route: 042
     Dates: start: 20080118, end: 20080119
  12. TYLENOL [Concomitant]
     Indication: PRODUCT USED FOR UNKNOWN INDICATION
     Route: 048

REACTIONS (10)
  - Pre-eclampsia [Recovered/Resolved]
  - Premature labour [Recovered/Resolved]
  - Pyrexia [Unknown]
  - Glucose tolerance test abnormal [Unknown]
  - Haemorrhage [Unknown]
  - Amniorrhoea [Recovered/Resolved]
  - Photocoagulation [Unknown]
  - Pain [Unknown]
  - Scar [Unknown]
  - Crohn^s disease [Unknown]
